FAERS Safety Report 7659244-8 (Version None)
Quarter: 2011Q3

REPORT INFORMATION
  Report Type: 
  Country: None (occurrence: None)
  Receive Date: 20110805
  Receipt Date: 20110729
  Transmission Date: 20111222
  Serious: Yes (Hospitalization)
  Sender: FDA-Public Use
  Company Number: BR-ROCHE-760231

PATIENT
  Sex: Male
  Weight: 66 kg

DRUGS (2)
  1. INTERFERON ALFA [Suspect]
     Indication: RENAL CANCER
     Route: 058
     Dates: start: 20100716, end: 20110209
  2. BEVACIZUMAB [Suspect]
     Indication: RENAL CANCER
     Route: 042
     Dates: start: 20100716, end: 20110209

REACTIONS (1)
  - NEPHROTIC SYNDROME [None]
